FAERS Safety Report 7350449-2 (Version None)
Quarter: 2011Q1

REPORT INFORMATION
  Report Type: 
  Country: None (occurrence: None)
  Receive Date: 20110303
  Receipt Date: 20110212
  Transmission Date: 20110831
  Serious: Yes (Other)
  Sender: FDA-Public Use
  Company Number: JPI-P-007930

PATIENT
  Age: 53 Year
  Sex: Male
  Weight: 85 kg

DRUGS (6)
  1. VENLAFAXINE HCL [Concomitant]
  2. XYREM [Suspect]
     Indication: CATAPLEXY
     Dosage: SEE IMAGE
     Route: 048
     Dates: start: 20090327, end: 20090402
  3. XYREM [Suspect]
     Indication: CATAPLEXY
     Dosage: SEE IMAGE
     Route: 048
     Dates: start: 20090502, end: 20090927
  4. XYREM [Suspect]
     Indication: CATAPLEXY
     Dosage: SEE IMAGE
     Route: 048
     Dates: start: 20090418, end: 20090501
  5. XYREM [Suspect]
     Indication: CATAPLEXY
     Dosage: SEE IMAGE
     Route: 048
     Dates: start: 20090403, end: 20090417
  6. MODAFINIL [Concomitant]

REACTIONS (14)
  - PRIAPISM [None]
  - ATROPHY [None]
  - AMNESIA [None]
  - INSOMNIA [None]
  - SOMNOLENCE [None]
  - FATIGUE [None]
  - TREMOR [None]
  - EJACULATION FAILURE [None]
  - ANXIETY [None]
  - HEADACHE [None]
  - PENIS DISORDER [None]
  - FEELING ABNORMAL [None]
  - SOMNAMBULISM [None]
  - LIBIDO DECREASED [None]
